FAERS Safety Report 21903511 (Version 1)
Quarter: 2023Q1

REPORT INFORMATION
  Report Type: Other
  Country: IT (occurrence: IT)
  Receive Date: 20230124
  Receipt Date: 20230124
  Transmission Date: 20230417
  Serious: Yes (Other)
  Sender: FDA-Public Use
  Company Number: IT-CELLTRION INC.-2023IT000976

PATIENT

DRUGS (1)
  1. RITUXIMAB [Suspect]
     Active Substance: RITUXIMAB
     Indication: Rheumatoid arthritis
     Dosage: 500 MG
     Route: 042
     Dates: start: 20220605, end: 20221109

REACTIONS (7)
  - Dermo-hypodermitis [Recovering/Resolving]
  - Neck pain [Recovering/Resolving]
  - Intermittent claudication [Recovering/Resolving]
  - Periphlebitis [Recovering/Resolving]
  - Back pain [Recovering/Resolving]
  - Loss of therapeutic response [Recovering/Resolving]
  - Underdose [Unknown]

NARRATIVE: CASE EVENT DATE: 20221001
